FAERS Safety Report 23512021 (Version 1)
Quarter: 2024Q1

REPORT INFORMATION
  Report Type: Spontaneous
  Country: US (occurrence: US)
  Receive Date: 20240212
  Receipt Date: 20240212
  Transmission Date: 20240410
  Serious: No
  Sender: FDA-Public Use
  Company Number: US-862174955-ML2024-00550

PATIENT
  Age: 79 Year
  Sex: Female

DRUGS (2)
  1. TRAVOPROST [Suspect]
     Active Substance: TRAVOPROST
     Indication: Product used for unknown indication
  2. TRAVOPROST [Suspect]
     Active Substance: TRAVOPROST
     Indication: Product used for unknown indication

REACTIONS (1)
  - Vision blurred [Unknown]
